FAERS Safety Report 18962323 (Version 1)
Quarter: 2021Q1

REPORT INFORMATION
  Report Type: Other
  Country: US (occurrence: US)
  Receive Date: 20210303
  Receipt Date: 20210303
  Transmission Date: 20210420
  Serious: No
  Sender: FDA-Public Use
  Company Number: US-ROCHE-2774688

PATIENT
  Sex: Female

DRUGS (3)
  1. OCREVUS [Suspect]
     Active Substance: OCRELIZUMAB
     Route: 042
  2. GLATIRAMER [Concomitant]
     Active Substance: GLATIRAMER
  3. OCREVUS [Suspect]
     Active Substance: OCRELIZUMAB
     Indication: MULTIPLE SCLEROSIS
     Dosage: INITIAL?300 MG DAY 1 AND DAY 15 LATER 600 MG EVERY 6 MONTHS
     Route: 042

REACTIONS (2)
  - Product dose omission issue [Unknown]
  - COVID-19 [Unknown]
